FAERS Safety Report 9710586 (Version 1)
Quarter: 2013Q4

REPORT INFORMATION
  Report Type: Spontaneous
  Country: US (occurrence: US)
  Receive Date: 20131126
  Receipt Date: 20131126
  Transmission Date: 20140711
  Serious: No
  Sender: FDA-Public Use
  Company Number: US-BRISTOL-MYERS SQUIBB COMPANY-18917724

PATIENT
  Age: 45 Year
  Sex: Female
  Weight: 165.98 kg

DRUGS (3)
  1. BYDUREON [Suspect]
     Indication: TYPE 2 DIABETES MELLITUS
     Route: 058
     Dates: start: 20130514
  2. METFORMIN HCL [Suspect]
     Dosage: DOSE REDUCED:FROM 850MG,PO,BID-850MG(HALF TAB)PO;BID
     Route: 048
  3. BYETTA [Suspect]
     Indication: TYPE 2 DIABETES MELLITUS
     Dosage: DURATION OF THERAPY:3-4 MONTHS?DOSE REDUCED:FROM 850MG,PO,BID-850MG(HALF TAB)PO;BID

REACTIONS (1)
  - Diarrhoea [Recovered/Resolved]
